FAERS Safety Report 5786201-9 (Version None)
Quarter: 2008Q2

REPORT INFORMATION
  Report Type: 
  Country: None (occurrence: None)
  Receive Date: 20080624
  Receipt Date: 20080502
  Transmission Date: 20081010
  Serious: Yes (Other)
  Sender: FDA-Public Use
  Company Number: B0526207A

PATIENT
  Sex: Female

DRUGS (1)
  1. PAROXETINE HCL [Suspect]
     Indication: DEPRESSION
     Route: 048

REACTIONS (4)
  - CRYING [None]
  - DEPRESSIVE SYMPTOM [None]
  - DRUG DEPENDENCE [None]
  - ORGASM ABNORMAL [None]
